FAERS Safety Report 24828050 (Version 1)
Quarter: 2025Q1

REPORT INFORMATION
  Report Type: Spontaneous
  Country: US (occurrence: US)
  Receive Date: 20250109
  Receipt Date: 20250109
  Transmission Date: 20250408
  Serious: Yes (Hospitalization)
  Sender: RADIUS PHARM
  Company Number: US-RADIUS HEALTH INC.-2024US010762

PATIENT

DRUGS (1)
  1. TYMLOS [Suspect]
     Active Substance: ABALOPARATIDE
     Indication: Senile osteoporosis
     Route: 058
     Dates: start: 202310

REACTIONS (1)
  - Acute myeloid leukaemia [Unknown]

NARRATIVE: CASE EVENT DATE: 20240101
